FAERS Safety Report 16350099 (Version 1)
Quarter: 2019Q2

REPORT INFORMATION
  Report Type: Report from Study
  Country: None (occurrence: US)
  Receive Date: 20190523
  Receipt Date: 20190523
  Transmission Date: 20190711
  Serious: Yes (Hospitalization)
  Sender: FDA-Public Use
  Company Number: US-ABBVIE-19K-163-2792259-00

PATIENT
  Sex: Male

DRUGS (1)
  1. VENCLEXTA [Suspect]
     Active Substance: VENETOCLAX
     Indication: CHRONIC LYMPHOCYTIC LEUKAEMIA
     Route: 048
     Dates: start: 20190429, end: 20190519

REACTIONS (4)
  - Hallucination [Unknown]
  - Pneumonia [Unknown]
  - Constipation [Unknown]
  - Lethargy [Unknown]

NARRATIVE: CASE EVENT DATE: 2019
